FAERS Safety Report 7830790-7 (Version None)
Quarter: 2011Q4

REPORT INFORMATION
  Report Type: 
  Country: None (occurrence: None)
  Receive Date: 20111021
  Receipt Date: 20111013
  Transmission Date: 20120403
  Serious: Yes (Hospitalization)
  Sender: FDA-Public Use
  Company Number: US-VIIV HEALTHCARE LIMITED-A0948973A

PATIENT
  Age: 16 Day
  Sex: Male

DRUGS (3)
  1. RETROVIR [Suspect]
     Indication: HIV INFECTION
     Dosage: 4MGK FOUR TIMES PER DAY
     Route: 048
     Dates: start: 20111013, end: 20111013
  2. MULTI-VITAMIN [Concomitant]
  3. MORPHINE [Concomitant]

REACTIONS (1)
  - OVERDOSE [None]
